FAERS Safety Report 8324963-7 (Version None)
Quarter: 2012Q2

REPORT INFORMATION
  Report Type: 
  Country: None (occurrence: None)
  Receive Date: 20120501
  Receipt Date: 20100226
  Transmission Date: 20120825
  Serious: No
  Sender: FDA-Public Use
  Company Number: US-TEVA-2010001164

PATIENT
  Sex: Male

DRUGS (5)
  1. CEREFOLIN [Concomitant]
     Dates: start: 20100225
  2. NEURONTIN [Concomitant]
     Dates: start: 20091201
  3. NUVIGIL [Suspect]
     Indication: SOMNOLENCE
     Dosage: 1 DOSAGE FORMS;
     Route: 048
     Dates: start: 20100225
  4. ZOLOFT [Concomitant]
     Dates: start: 20100225
  5. BUPROPION HCL [Concomitant]
     Dates: start: 20080101

REACTIONS (1)
  - DRUG INEFFECTIVE FOR UNAPPROVED INDICATION [None]
